FAERS Safety Report 10590405 (Version 2)
Quarter: 2014Q4

REPORT INFORMATION
  Report Type: Report from Study
  Country: CN (occurrence: CN)
  Receive Date: 20141118
  Receipt Date: 20141118
  Transmission Date: 20150529
  Serious: Yes (Death, Hospitalization)
  Sender: FDA-Public Use
  Company Number: CN-ROCHE-1298891

PATIENT
  Age: 41 Year
  Sex: Male
  Weight: 56 kg

DRUGS (2)
  1. AVASTIN [Suspect]
     Active Substance: BEVACIZUMAB
     Route: 042
  2. AVASTIN [Suspect]
     Active Substance: BEVACIZUMAB
     Indication: COLON CANCER
     Route: 042
     Dates: start: 20130723, end: 201401

REACTIONS (10)
  - Cachexia [Recovering/Resolving]
  - Dyspepsia [Unknown]
  - Ascites [Unknown]
  - Nausea [Unknown]
  - Vomiting [Unknown]
  - Gastrointestinal mucosal disorder [Unknown]
  - Disease progression [Fatal]
  - Nasopharyngitis [Recovering/Resolving]
  - Abdominal pain upper [Unknown]
  - Decreased appetite [Unknown]

NARRATIVE: CASE EVENT DATE: 20131031
